FAERS Safety Report 5181047-7 (Version None)
Quarter: 2006Q4

REPORT INFORMATION
  Report Type: 
  Country: None (occurrence: None)
  Receive Date: 20061220
  Receipt Date: 20061211
  Transmission Date: 20070319
  Serious: Yes (Hospitalization)
  Sender: FDA-Public Use
  Company Number: US-ABBOTT-06P-163-0352869-00

PATIENT
  Sex: Male
  Weight: 98 kg

DRUGS (29)
  1. RITONAVIR SOFT GELATIN CAPSULES [Suspect]
     Indication: HIV INFECTION
     Route: 048
     Dates: start: 20051222
  2. TMC114 [Concomitant]
     Indication: HIV INFECTION
     Route: 048
     Dates: start: 20051222
  3. PRINZIDE [Concomitant]
     Indication: HYPERTENSION
     Dates: end: 20060202
  4. DIDANOSINE [Concomitant]
     Indication: DRUG USE FOR UNKNOWN INDICATION
     Route: 048
     Dates: start: 20020101
  5. FUZEON [Concomitant]
     Indication: HIV INFECTION
     Route: 050
     Dates: start: 20040818
  6. EPOGEN [Concomitant]
     Indication: ANAEMIA
     Route: 058
  7. BACTRIM [Concomitant]
     Indication: ANTIBIOTIC PROPHYLAXIS
  8. LEXAPRO [Concomitant]
     Indication: DEPRESSION
  9. LEXAPRO [Concomitant]
     Indication: ANXIETY
  10. ATORVASTATIN [Concomitant]
     Indication: HYPERLIPIDAEMIA
  11. GLUCOPHAGE [Concomitant]
     Indication: DIABETES MELLITUS
  12. VALACYCLOVIR HCL [Concomitant]
     Indication: ANTIVIRAL PROPHYLAXIS
     Route: 048
  13. TERAZOSIN HYDROCHLORIDE [Concomitant]
     Indication: HYPERTENSION
  14. GEMFIBROZIL [Concomitant]
     Indication: HYPERLIPIDAEMIA
  15. TRAZODONE HCL [Concomitant]
     Indication: DEPRESSION
  16. TRAZODONE HCL [Concomitant]
     Indication: INSOMNIA
  17. PREDNISONE TAB [Concomitant]
     Indication: DRUG USE FOR UNKNOWN INDICATION
     Route: 048
     Dates: start: 20060113
  18. PREDNISONE TAB [Concomitant]
     Route: 048
     Dates: start: 20060111
  19. FLUCONAZOLE [Concomitant]
     Indication: DRUG USE FOR UNKNOWN INDICATION
     Route: 048
     Dates: start: 20060113
  20. FLUCONAZOLE [Concomitant]
     Route: 048
     Dates: start: 20060131
  21. CLARITHROMYCIN [Concomitant]
     Indication: DRUG USE FOR UNKNOWN INDICATION
     Route: 048
     Dates: start: 20060113
  22. ETHAMBUTOL HYDROCHLORIDE [Concomitant]
     Indication: DRUG USE FOR UNKNOWN INDICATION
     Route: 048
     Dates: start: 20060113
  23. CEFTRIAXONE SODIUM [Concomitant]
     Indication: DRUG USE FOR UNKNOWN INDICATION
     Route: 030
     Dates: start: 20060126, end: 20060126
  24. CLAVULIN [Concomitant]
     Indication: DRUG USE FOR UNKNOWN INDICATION
     Route: 048
     Dates: start: 20060126, end: 20060130
  25. HYDROXYZINE HYDROCHLORIDE [Concomitant]
     Indication: DRUG USE FOR UNKNOWN INDICATION
     Route: 048
     Dates: start: 20060126, end: 20060130
  26. GLIPIZIDE [Concomitant]
     Indication: DRUG USE FOR UNKNOWN INDICATION
     Route: 048
     Dates: start: 20060113, end: 20060130
  27. OXYCODONE HYDROCHLORIDE AND ACETAMINOPHEN [Concomitant]
     Indication: DRUG USE FOR UNKNOWN INDICATION
     Route: 048
     Dates: start: 20060131
  28. EPIZICOM [Concomitant]
     Indication: HIV INFECTION
     Route: 048
     Dates: start: 20050105
  29. ESCITALOPRAM OXALATE [Concomitant]
     Indication: DRUG USE FOR UNKNOWN INDICATION

REACTIONS (3)
  - ASTHMA [None]
  - DEHYDRATION [None]
  - IMMUNE RECONSTITUTION SYNDROME [None]
